FAERS Safety Report 6926409-X (Version None)
Quarter: 2010Q3

REPORT INFORMATION
  Report Type: 
  Country: None (occurrence: None)
  Receive Date: 20100816
  Receipt Date: 20100806
  Transmission Date: 20110219
  Serious: Yes (Disabling, Other)
  Sender: FDA-Public Use
  Company Number: DK-ABBOTT-09P-044-0497276-00

PATIENT
  Sex: Female
  Weight: 70 kg

DRUGS (2)
  1. HUMIRA [Suspect]
     Indication: PSORIASIS
     Route: 058
     Dates: start: 20080417, end: 20080625
  2. HUMIRA [Suspect]
     Route: 058
     Dates: start: 20080813, end: 20081101

REACTIONS (4)
  - COUGH [None]
  - DRUG INEFFECTIVE [None]
  - INFECTION [None]
  - MYOCLONUS [None]
